FAERS Safety Report 22161849 (Version 1)
Quarter: 2023Q1

REPORT INFORMATION
  Report Type: Spontaneous
  Country: US (occurrence: US)
  Receive Date: 20230331
  Receipt Date: 20230331
  Transmission Date: 20230417
  Serious: Yes (Other)
  Sender: FDA-Public Use
  Company Number: US-OTSUKA-2023_008094

PATIENT
  Age: 66 Year
  Sex: Female

DRUGS (1)
  1. IOHEXOL [Suspect]
     Active Substance: IOHEXOL
     Indication: Percutaneous coronary intervention
     Dosage: 130 ML
     Route: 065

REACTIONS (2)
  - Contrast encephalopathy [Unknown]
  - Product use in unapproved indication [Unknown]
